FAERS Safety Report 19584469 (Version 1)
Quarter: 2021Q3

REPORT INFORMATION
  Report Type: Spontaneous
  Country: CN (occurrence: CN)
  Receive Date: 20210720
  Receipt Date: 20210720
  Transmission Date: 20211014
  Serious: Yes (Hospitalization)
  Sender: FDA-Public Use
  Company Number: CN-ALLERGAN-2125953US

PATIENT
  Sex: Male
  Weight: 61 kg

DRUGS (2)
  1. CEFTAZIDIME;AVIBACTAM ? BP [Suspect]
     Active Substance: AVIBACTAM SODIUM\CEFTAZIDIME
     Indication: INFECTION
     Dosage: 2.5 G, Q8HR
     Route: 041
     Dates: start: 20210505, end: 20210521
  2. VANCOCIN [Suspect]
     Active Substance: VANCOMYCIN HYDROCHLORIDE
     Indication: INFECTION
     Dosage: 1 G, Q12H
     Route: 041
     Dates: start: 20210505, end: 20210521

REACTIONS (3)
  - Chills [Unknown]
  - Temperature intolerance [Unknown]
  - Pyrexia [Recovering/Resolving]

NARRATIVE: CASE EVENT DATE: 20210521
